FAERS Safety Report 24617304 (Version 2)
Quarter: 2024Q4

REPORT INFORMATION
  Report Type: Spontaneous
  Country: JP (occurrence: JP)
  Receive Date: 20241114
  Receipt Date: 20241205
  Transmission Date: 20250114
  Serious: Yes (Hospitalization)
  Sender: Unknown Manufacturer
  Company Number: JP-MTPC-MTPC2024-0023041

PATIENT

DRUGS (2)
  1. EDARAVONE [Suspect]
     Active Substance: EDARAVONE
     Dosage: 70 MILLILITER
     Route: 048
  2. EDARAVONE [Suspect]
     Active Substance: EDARAVONE
     Dosage: 70 MILLILITER
     Route: 048

REACTIONS (2)
  - Coronavirus infection [Recovered/Resolved]
  - Off label use [Recovered/Resolved]
